FAERS Safety Report 23992550 (Version 1)
Quarter: 2024Q2

REPORT INFORMATION
  Report Type: Spontaneous
  Country: US (occurrence: US)
  Receive Date: 20240620
  Receipt Date: 20240620
  Transmission Date: 20240716
  Serious: No
  Sender: FDA-Public Use
  Company Number: US-TEVA-VS-3208132

PATIENT
  Age: 57 Year
  Sex: Female

DRUGS (2)
  1. AUSTEDO [Suspect]
     Active Substance: DEUTETRABENAZINE
     Indication: Tardive dyskinesia
     Route: 048
  2. CYMBALTA [Concomitant]
     Active Substance: DULOXETINE HYDROCHLORIDE
     Route: 065

REACTIONS (7)
  - Depression [Unknown]
  - Decreased appetite [Unknown]
  - Pain [Unknown]
  - Eating disorder [Unknown]
  - Crying [Unknown]
  - Weight increased [Unknown]
  - Muscular weakness [Unknown]
